FAERS Safety Report 21502581 (Version 2)
Quarter: 2022Q4

REPORT INFORMATION
  Report Type: Report from Study
  Country: US (occurrence: US)
  Receive Date: 20221025
  Receipt Date: 20221118
  Transmission Date: 20230112
  Serious: No
  Sender: FDA-Public Use
  Company Number: US-ASTELLAS-2022US037840

PATIENT
  Sex: Female

DRUGS (1)
  1. GILTERITINIB [Suspect]
     Active Substance: GILTERITINIB
     Indication: Acute myeloid leukaemia
     Route: 048
     Dates: start: 20220607

REACTIONS (4)
  - Heat stroke [Unknown]
  - Dizziness [Unknown]
  - White blood cell count increased [Unknown]
  - Dehydration [Unknown]
